FAERS Safety Report 12679291 (Version 1)
Quarter: 2016Q3

REPORT INFORMATION
  Report Type: Spontaneous
  Country: US (occurrence: US)
  Receive Date: 20160824
  Receipt Date: 20160824
  Transmission Date: 20161109
  Serious: No
  Sender: FDA-Public Use
  Company Number: US-009507513-1608USA003961

PATIENT
  Age: 26 Year
  Sex: Female

DRUGS (1)
  1. NEXPLANON [Suspect]
     Active Substance: ETONOGESTREL
     Indication: CONTRACEPTION
     Dosage: STRENGTH AND DOSE WERE UNKNOWN, EVERY THREE YEARS
     Route: 059
     Dates: start: 20151119, end: 20160314

REACTIONS (3)
  - Vaginal haemorrhage [Recovered/Resolved]
  - Depression [Recovered/Resolved]
  - Breast tenderness [Recovered/Resolved]
